FAERS Safety Report 24412418 (Version 3)
Quarter: 2024Q4

REPORT INFORMATION
  Report Type: Spontaneous
  Country: AU (occurrence: AU)
  Receive Date: 20241008
  Receipt Date: 20241113
  Transmission Date: 20250115
  Serious: Yes (Hospitalization, Other)
  Sender: MYLAN
  Company Number: AU-MYLANLABS-2024M1090995

PATIENT
  Age: 53 Year
  Sex: Female
  Weight: 105 kg

DRUGS (8)
  1. CLOZARIL [Suspect]
     Active Substance: CLOZAPINE
     Indication: Schizophrenia
     Dosage: 50 MILLIGRAM
     Route: 048
     Dates: start: 20191217
  2. CLOZARIL [Suspect]
     Active Substance: CLOZAPINE
     Dosage: 87.5 MILLIGRAM, PM (AT NIGHT, CEASED ON THE NIGHT OF 3/10)
     Route: 048
  3. CLOZARIL [Suspect]
     Active Substance: CLOZAPINE
     Dosage: 25 MILLIGRAM
     Route: 048
  4. ATORVASTATIN [Concomitant]
     Active Substance: ATORVASTATIN
     Dosage: 80 MILLIGRAM, AM (IN MORNING)
     Route: 065
  5. Serc [Concomitant]
     Dosage: 16 MILLIGRAM, AM (IN MORNING)
     Route: 065
  6. APO METFORMIN XR [Concomitant]
     Dosage: 2 GRAM, PM (APO-METFORMIN XR 1000, MODIFIED RELEASE)
     Route: 065
  7. PROCHLORPERAZINE [Concomitant]
     Active Substance: PROCHLORPERAZINE
     Dosage: 5 MILLIGRAM ( TDS/PRN)
     Route: 065
  8. ASCORBIC ACID\FERROUS SULFATE [Concomitant]
     Active Substance: ASCORBIC ACID\FERROUS SULFATE
     Dosage: UNK, AM (MORNING)
     Route: 065

REACTIONS (15)
  - Malaise [Unknown]
  - Respiratory failure [Unknown]
  - Paranoia [Unknown]
  - Illusion [Unknown]
  - Acute pulmonary oedema [Unknown]
  - Dyspnoea [Unknown]
  - Electrocardiogram T wave inversion [Unknown]
  - Right ventricular failure [Unknown]
  - Lethargy [Unknown]
  - Oedema [Unknown]
  - Epistaxis [Unknown]
  - Iron deficiency [Unknown]
  - Obstructive sleep apnoea syndrome [Unknown]
  - Left ventricular dysfunction [Unknown]
  - Treatment noncompliance [Unknown]

NARRATIVE: CASE EVENT DATE: 20241003
